FAERS Safety Report 21521509 (Version 2)
Quarter: 2023Q1

REPORT INFORMATION
  Report Type: Spontaneous
  Country: US (occurrence: US)
  Receive Date: 20221028
  Receipt Date: 20230123
  Transmission Date: 20230418
  Serious: No
  Sender: FDA-Public Use
  Company Number: US-SA-SAC20221021000501

PATIENT
  Sex: Male

DRUGS (1)
  1. DUPIXENT [Suspect]
     Active Substance: DUPILUMAB
     Dosage: 300 MG, OTHER
     Route: 058

REACTIONS (7)
  - Eyelid margin crusting [Recovering/Resolving]
  - Ocular hyperaemia [Recovering/Resolving]
  - Injection site erythema [Unknown]
  - Injection site swelling [Recovered/Resolved]
  - Injection site pain [Unknown]
  - Dry eye [Unknown]
  - Conjunctivitis [Unknown]
